FAERS Safety Report 14064255 (Version 2)
Quarter: 2017Q4

REPORT INFORMATION
  Report Type: Spontaneous
  Country: JP (occurrence: JP)
  Receive Date: 20171009
  Receipt Date: 20171127
  Transmission Date: 20180321
  Serious: Yes (Other)
  Sender: FDA-Public Use
  Company Number: JP-PFIZER INC-2017430324

PATIENT
  Age: 57 Year
  Sex: Female

DRUGS (6)
  1. DOXIL [Suspect]
     Active Substance: DOXORUBICIN HYDROCHLORIDE
     Indication: OVARIAN CANCER
     Dosage: 59 MG, 1X/DAY
     Route: 041
     Dates: start: 20170830, end: 20170929
  2. GRANISETRON [Concomitant]
     Active Substance: GRANISETRON
     Dosage: 3 MG, UNK
     Route: 041
     Dates: start: 20170111, end: 20170929
  3. DEXART [Suspect]
     Active Substance: DEXAMETHASONE SODIUM PHOSPHATE
     Dosage: 8.25 MG, 1X/DAY
     Route: 041
     Dates: start: 20170111, end: 20170929
  4. LYRICA [Suspect]
     Active Substance: PREGABALIN
     Indication: NEURALGIA
     Dosage: 25 MG, 1X/DAY
     Route: 048
     Dates: start: 20170929, end: 20170929
  5. FENTOS [Concomitant]
     Active Substance: FENTANYL
     Indication: CANCER PAIN
     Dosage: 2 MG, 1X/DAY
     Route: 062
     Dates: start: 20170926, end: 20170929
  6. FENTOS [Concomitant]
     Active Substance: FENTANYL
     Dosage: 2.5 MG, 1X/DAY
     Dates: start: 20170930

REACTIONS (4)
  - Seizure [Recovered/Resolved]
  - Palpitations [Recovered/Resolved]
  - Paralysis [Recovered/Resolved]
  - Nausea [Recovered/Resolved]

NARRATIVE: CASE EVENT DATE: 20170929
